FAERS Safety Report 22108181 (Version 1)
Quarter: 2023Q1

REPORT INFORMATION
  Report Type: Spontaneous
  Country: CN (occurrence: CN)
  Receive Date: 20230317
  Receipt Date: 20230317
  Transmission Date: 20230418
  Serious: Yes (Hospitalization, Other)
  Sender: FDA-Public Use
  Company Number: CN-SA-2023SA079547

PATIENT
  Age: 52 Year
  Sex: Female

DRUGS (5)
  1. INSULIN GLARGINE [Suspect]
     Active Substance: INSULIN GLARGINE
     Indication: Diabetes mellitus
     Dosage: UNK
     Dates: start: 201503
  2. INSULIN ASPART [Suspect]
     Active Substance: INSULIN ASPART
     Indication: Diabetes mellitus
     Dosage: UNK
     Dates: start: 201503
  3. INSULIN ASPART [Suspect]
     Active Substance: INSULIN ASPART
     Dosage: 10 -20 U/ML
     Dates: start: 201808, end: 20190805
  4. INSULIN LISPRO [Suspect]
     Active Substance: INSULIN LISPRO
     Indication: Diabetes mellitus
     Dosage: UNK, INSULIN LISPRO PUMPING
     Dates: start: 201710, end: 201803
  5. INSULIN HUMAN [Suspect]
     Active Substance: INSULIN HUMAN
     Indication: Diabetes mellitus
     Dosage: UNK
     Route: 058
     Dates: start: 201803

REACTIONS (9)
  - Hypersensitivity [Recovering/Resolving]
  - Hyperglycaemia [Recovering/Resolving]
  - Hypoglycaemia [Recovering/Resolving]
  - Diabetic ketosis [Recovering/Resolving]
  - Injection site urticaria [Recovering/Resolving]
  - Injection site pruritus [Recovering/Resolving]
  - Palpitations [Recovering/Resolving]
  - Hyperhidrosis [Recovering/Resolving]
  - Injection site atrophy [Recovering/Resolving]

NARRATIVE: CASE EVENT DATE: 20170101
